FAERS Safety Report 19144114 (Version 2)
Quarter: 2021Q2

REPORT INFORMATION
  Report Type: Spontaneous
  Country: JP (occurrence: JP)
  Receive Date: 20210416
  Receipt Date: 20210430
  Transmission Date: 20210717
  Serious: No
  Sender: FDA-Public Use
  Company Number: JP-NOVOPROD-747587

PATIENT
  Age: 72 Year
  Sex: Male
  Weight: 78.7 kg

DRUGS (1)
  1. OZEMPIC [Suspect]
     Active Substance: SEMAGLUTIDE
     Indication: TYPE 2 DIABETES MELLITUS
     Dosage: 0.25 MG, QW
     Route: 058
     Dates: start: 20200715

REACTIONS (1)
  - Injection site pain [Recovering/Resolving]

NARRATIVE: CASE EVENT DATE: 20200715
